FAERS Safety Report 16827268 (Version 8)
Quarter: 2022Q4

REPORT INFORMATION
  Report Type: Report from Study
  Country: ES (occurrence: ES)
  Receive Date: 20190919
  Receipt Date: 20221029
  Transmission Date: 20230113
  Serious: Yes (Death, Other)
  Sender: FDA-Public Use
  Company Number: ES-JNJFOC-20190116956

PATIENT
  Age: 64 Year
  Sex: Female

DRUGS (2)
  1. VENETOCLAX [Suspect]
     Active Substance: VENETOCLAX
     Indication: Chronic lymphocytic leukaemia
     Route: 048
  2. IMBRUVICA [Suspect]
     Active Substance: IBRUTINIB
     Indication: Chronic lymphocytic leukaemia
     Dosage: START PERIOD 70 DAYS
     Route: 048
     Dates: start: 20180621

REACTIONS (3)
  - Chest discomfort [Fatal]
  - Arthritis [Fatal]
  - Palpitations [Fatal]

NARRATIVE: CASE EVENT DATE: 20180830
